FAERS Safety Report 18230262 (Version 1)
Quarter: 2020Q3

REPORT INFORMATION
  Report Type: Spontaneous
  Country: CA (occurrence: CA)
  Receive Date: 20200904
  Receipt Date: 20200904
  Transmission Date: 20201103
  Serious: Yes (Life-Threatening)
  Sender: FDA-Public Use
  Company Number: CA-TEVA-2020-CA-1821667

PATIENT
  Age: 49 Year
  Sex: Female

DRUGS (1)
  1. PACLITAXEL INJECTION [Suspect]
     Active Substance: PACLITAXEL
     Indication: ENDOMETRIAL CANCER

REACTIONS (3)
  - Unresponsive to stimuli [Unknown]
  - Dyspnoea [Unknown]
  - Tachycardia [Unknown]
